FAERS Safety Report 4469001-1 (Version None)
Quarter: 2004Q4

REPORT INFORMATION
  Report Type: 
  Country: None (occurrence: None)
  Receive Date: 20041008
  Receipt Date: 20040927
  Transmission Date: 20050328
  Serious: Yes (Hospitalization)
  Sender: FDA-Public Use
  Company Number: US-JNJFOC-20040502765

PATIENT
  Age: 61 Year
  Sex: Female
  Weight: 45.36 kg

DRUGS (7)
  1. ELMIRON [Suspect]
     Indication: BLADDER PAIN
     Dosage: 100MG OR 300MG THREE TIMES DAILY
     Route: 049
  2. ROCEPHIN [Suspect]
     Indication: VIRAL INFECTION
  3. PAXIL [Concomitant]
  4. ADVIL [Concomitant]
     Dosage: AS NECESSARY
     Route: 049
  5. CALCIUM [Concomitant]
     Route: 049
  6. LORAZEPAM [Concomitant]
     Dosage: TAKEN AT NIGHT
     Route: 049
  7. TIAZAC [Concomitant]
     Route: 049

REACTIONS (5)
  - ARTHRALGIA [None]
  - DEPRESSION [None]
  - MUSCULOSKELETAL STIFFNESS [None]
  - PYREXIA [None]
  - RASH GENERALISED [None]
